FAERS Safety Report 6694759-0 (Version None)
Quarter: 2010Q2

REPORT INFORMATION
  Report Type: 
  Country: None (occurrence: None)
  Receive Date: 20100423
  Receipt Date: 20100414
  Transmission Date: 20101027
  Serious: Yes (Hospitalization)
  Sender: FDA-Public Use
  Company Number: B0647307A

PATIENT
  Sex: Male
  Weight: 65 kg

DRUGS (4)
  1. ZIAGEN [Suspect]
     Indication: HIV INFECTION
     Dosage: 600MG PER DAY
     Route: 048
     Dates: start: 20000807
  2. VIRAMUNE [Suspect]
     Indication: HIV INFECTION
     Dosage: 400MG PER DAY
     Route: 048
     Dates: start: 19990701
  3. VIDEX [Suspect]
     Indication: HIV INFECTION
     Dosage: 300MG PER DAY
     Route: 048
     Dates: start: 19990701, end: 20080201
  4. VASTEN [Suspect]
     Route: 048
     Dates: start: 19990701

REACTIONS (7)
  - BILIARY DILATATION [None]
  - CHOLANGITIS CHRONIC [None]
  - CHRONIC HEPATITIS [None]
  - HEPATIC FUNCTION ABNORMAL [None]
  - PORTAL VEIN THROMBOSIS [None]
  - THYROID NEOPLASM [None]
  - VARICES OESOPHAGEAL [None]
